FAERS Safety Report 9246669 (Version 2)
Quarter: 2013Q2

REPORT INFORMATION
  Report Type: Spontaneous
  Country: US (occurrence: US)
  Receive Date: 20130422
  Receipt Date: 20130524
  Transmission Date: 20140414
  Serious: Yes (Disabling)
  Sender: FDA-Public Use
  Company Number: US-PFIZER INC-2013124060

PATIENT
  Age: 53 Year
  Sex: Male
  Weight: 90.7 kg

DRUGS (10)
  1. LYRICA [Suspect]
     Indication: FIBROMYALGIA
     Dosage: 100 MG, 3X/DAY
     Route: 048
     Dates: end: 201212
  2. ATENOLOL [Concomitant]
     Dosage: UNK
  3. ALDACTONE [Concomitant]
     Dosage: UNK
  4. PREDNISONE [Concomitant]
     Indication: COLITIS ULCERATIVE
     Dosage: 10 MG, 1X/DAY
  5. METFORMIN [Concomitant]
     Indication: DIABETES MELLITUS
     Dosage: UNK
  6. LANTUS [Concomitant]
     Dosage: UNK
  7. TYLENOL [Concomitant]
     Dosage: UNK
  8. BABY ASPIRIN [Concomitant]
     Dosage: UNK
  9. FISH OIL [Concomitant]
     Dosage: UNK
  10. INSULIN [Concomitant]
     Indication: DIABETES MELLITUS
     Dosage: UNK

REACTIONS (4)
  - Back pain [Unknown]
  - Pain in extremity [Unknown]
  - Weight fluctuation [Unknown]
  - Blood cholesterol increased [Unknown]
